FAERS Safety Report 10155457 (Version 1)
Quarter: 2014Q2

REPORT INFORMATION
  Report Type: Spontaneous
  Country: BE (occurrence: BE)
  Receive Date: 20140506
  Receipt Date: 20140506
  Transmission Date: 20141212
  Serious: Yes (Other)
  Sender: FDA-Public Use
  Company Number: PHHY2014BE051823

PATIENT
  Age: 36 Year
  Sex: Female

DRUGS (6)
  1. METOPROLOL [Suspect]
     Indication: MYOCARDIAL INFARCTION
     Dosage: 100 MG, UNK
  2. METOPROLOL [Suspect]
     Indication: ISCHAEMIC CARDIOMYOPATHY
  3. HYDRALAZINE [Suspect]
     Indication: ISCHAEMIC CARDIOMYOPATHY
     Dosage: 12.5 MG, TID
  4. HYDRALAZINE [Suspect]
     Indication: MYOCARDIAL INFARCTION
     Dosage: 25 MG, TID
  5. ASPIRIN [Suspect]
     Indication: ISCHAEMIC CARDIOMYOPATHY
     Dosage: 80 MG, UNK
  6. ASPIRIN [Suspect]
     Indication: MYOCARDIAL INFARCTION

REACTIONS (5)
  - Ejection fraction decreased [Unknown]
  - Dyspnoea [Unknown]
  - Oedema peripheral [Unknown]
  - Maternal exposure during pregnancy [Unknown]
  - Normal newborn [Unknown]
